FAERS Safety Report 17727926 (Version 1)
Quarter: 2020Q2

REPORT INFORMATION
  Report Type: Report from Study
  Country: CA (occurrence: CA)
  Receive Date: 20200430
  Receipt Date: 20200430
  Transmission Date: 20200714
  Serious: Yes (Other)
  Sender: FDA-Public Use
  Company Number: CA-BAUSCH-BL-2020-012790

PATIENT
  Sex: Male

DRUGS (3)
  1. SOFOSBUVIR;VELPATASVIR;VOXILAPREVIR [Suspect]
     Active Substance: SOFOSBUVIR\VELPATASVIR\VOXILAPREVIR
     Indication: CHRONIC HEPATITIS C
     Route: 065
  2. RIBAVIRIN. [Suspect]
     Active Substance: RIBAVIRIN
     Indication: CHRONIC HEPATITIS C
     Route: 065
  3. RIBAVIRIN. [Suspect]
     Active Substance: RIBAVIRIN
     Indication: OFF LABEL USE

REACTIONS (2)
  - Hepatic failure [Unknown]
  - Off label use [Unknown]
